FAERS Safety Report 4292501-4 (Version None)
Quarter: 2004Q1

REPORT INFORMATION
  Report Type: 
  Country: None (occurrence: None)
  Receive Date: 20040211
  Receipt Date: 20040211
  Transmission Date: 20041129
  Serious: No
  Sender: FDA-Public Use
  Company Number: None

PATIENT
  Sex: Female

DRUGS (15)
  1. TEQUIN [Suspect]
     Indication: PNEUMONIA
     Dosage: 400 MG ONCE INTRAVENOUS
     Route: 042
     Dates: start: 20040103, end: 20040104
  2. FOSAMAX [Concomitant]
  3. PREDNISONE [Concomitant]
  4. SINGULAIR [Concomitant]
  5. LEVOXYL [Concomitant]
  6. CYCLOSPORINE [Concomitant]
  7. REGLAN [Concomitant]
  8. COLACE [Concomitant]
  9. AMIODARONE HCL [Concomitant]
  10. NORVASC [Concomitant]
  11. LASIX [Concomitant]
  12. DURAGESIC [Concomitant]
  13. ITRACONAZOLE [Concomitant]
  14. BACTRIM DS [Concomitant]
  15. DIAZEPAM [Concomitant]

REACTIONS (2)
  - HYPOGLYCAEMIA [None]
  - PNEUMONIA [None]
